FAERS Safety Report 7064863-6 (Version None)
Quarter: 2010Q4

REPORT INFORMATION
  Report Type: 
  Country: None (occurrence: None)
  Receive Date: 20101027
  Receipt Date: 20101014
  Transmission Date: 20110411
  Serious: Yes (Other)
  Sender: FDA-Public Use
  Company Number: US-ELI_LILLY_AND_COMPANY-US201009004329

PATIENT
  Sex: Female

DRUGS (8)
  1. CYMBALTA [Suspect]
     Indication: DEPRESSION
     Dosage: 30 MG, DAILY (1/D)
     Dates: start: 20100401
  2. CYMBALTA [Suspect]
     Dosage: 60 MG, DAILY (1/D)
  3. PROZAC [Suspect]
     Indication: DEPRESSION
     Dosage: 20 MG, 2/D
     Dates: end: 20100401
  4. PROZAC WEEKLY [Suspect]
     Indication: DEPRESSION
     Dosage: 2 D/F, WEEKLY (1/W)
  5. SYNTHROID [Concomitant]
  6. ATENOLOL [Concomitant]
  7. CLONAZEPAM [Concomitant]
  8. ELAVIL [Concomitant]

REACTIONS (6)
  - CATARACT [None]
  - DRUG INEFFECTIVE [None]
  - OBSESSIVE THOUGHTS [None]
  - OCULAR HYPERAEMIA [None]
  - OVERDOSE [None]
  - VENTRICULAR EXTRASYSTOLES [None]
